FAERS Safety Report 16483432 (Version 1)
Quarter: 2019Q2

REPORT INFORMATION
  Report Type: Spontaneous
  Country: US (occurrence: US)
  Receive Date: 20190516
  Receipt Date: 20190516
  Transmission Date: 20190711
  Serious: No
  Sender: FDA-Public Use
  Company Number: None

PATIENT
  Age: 51 Year
  Sex: Female

DRUGS (2)
  1. ARSENIC [Concomitant]
     Active Substance: ARSENIC
  2. TRETINOIN CAP 10MG [Suspect]
     Active Substance: TRETINOIN
     Indication: ACUTE PROMYELOCYTIC LEUKAEMIA
     Route: 048
     Dates: start: 201905

REACTIONS (4)
  - Headache [None]
  - Candida infection [None]
  - Nausea [None]
  - Rash [None]

NARRATIVE: CASE EVENT DATE: 20190510
